FAERS Safety Report 4874586-7 (Version None)
Quarter: 2006Q1

REPORT INFORMATION
  Report Type: 
  Country: None (occurrence: None)
  Receive Date: 20060106
  Receipt Date: 20051227
  Transmission Date: 20060701
  Serious: Yes (Hospitalization)
  Sender: FDA-Public Use
  Company Number: US-MERCK-0512USA04015

PATIENT
  Age: 55 Year
  Sex: Male
  Weight: 95 kg

DRUGS (9)
  1. VIOXX [Suspect]
     Indication: BACK PAIN
     Route: 048
     Dates: start: 20030429
  2. VIOXX [Suspect]
     Indication: INTERVERTEBRAL DISC DEGENERATION
     Route: 048
     Dates: start: 20030429
  3. MINOXIDIL [Suspect]
     Indication: HYPERTENSION
     Route: 065
     Dates: start: 20030101, end: 20030708
  4. ATENOLOL [Concomitant]
     Indication: HYPERTENSION
     Route: 065
     Dates: start: 20020101, end: 20030101
  5. LOPRESSOR [Concomitant]
     Route: 065
     Dates: start: 20020101, end: 20030101
  6. PROCARDIA [Concomitant]
     Route: 065
     Dates: start: 20020101, end: 20030101
  7. CATAPRES [Concomitant]
     Route: 065
     Dates: start: 20030101, end: 20030101
  8. [THERAPY UNSPECIFIED] [Concomitant]
     Route: 065
     Dates: start: 20000101
  9. ASPIRIN [Concomitant]
     Route: 065
     Dates: start: 19900101

REACTIONS (15)
  - ANAEMIA [None]
  - ANGINA UNSTABLE [None]
  - AZOTAEMIA [None]
  - CARDIAC STRESS TEST ABNORMAL [None]
  - CORONARY ARTERY DISEASE [None]
  - GASTROOESOPHAGEAL REFLUX DISEASE [None]
  - HYPERGLYCAEMIA [None]
  - HYPERLIPIDAEMIA [None]
  - INTERVERTEBRAL DISC PROTRUSION [None]
  - LACERATION [None]
  - MYOCARDIAL INFARCTION [None]
  - OBESITY [None]
  - OEDEMA PERIPHERAL [None]
  - SLEEP APNOEA SYNDROME [None]
  - VENTRICULAR HYPERTROPHY [None]
